FAERS Safety Report 10751990 (Version 1)
Quarter: 2015Q1

REPORT INFORMATION
  Report Type: Report from Study
  Country: DE (occurrence: DE)
  Receive Date: 20150130
  Receipt Date: 20150130
  Transmission Date: 20150721
  Serious: Yes (Death, Hospitalization)
  Sender: FDA-Public Use
  Company Number: DE-009507513-1501DEU003644

PATIENT
  Age: 42 Year
  Sex: Female

DRUGS (2)
  1. PEMBROLIZUMAB. [Suspect]
     Active Substance: PEMBROLIZUMAB
     Indication: MALIGNANT MELANOMA
     Dosage: 2 MG/KG, Q3W, STRENGTH AND DAILY DOSE : 115 MG
     Route: 042
     Dates: start: 20140612, end: 20141016
  2. LYRICA [Concomitant]
     Active Substance: PREGABALIN
     Dosage: UNK

REACTIONS (5)
  - Anaemia [Unknown]
  - Disease progression [Fatal]
  - Genitourinary tract infection [Unknown]
  - Myoclonus [Not Recovered/Not Resolved]
  - Lymphoedema [Unknown]

NARRATIVE: CASE EVENT DATE: 20141111
